FAERS Safety Report 6827195-4 (Version None)
Quarter: 2010Q3

REPORT INFORMATION
  Report Type: 
  Country: None (occurrence: None)
  Receive Date: 20100709
  Receipt Date: 20100701
  Transmission Date: 20110219
  Serious: Yes (Other)
  Sender: FDA-Public Use
  Company Number: GXKR2010IN07343

PATIENT
  Sex: Female

DRUGS (1)
  1. VALPROIC ACID (NGX) [Suspect]
     Indication: EPILEPSY
     Dosage: 1200 MG/DAY
     Route: 048

REACTIONS (2)
  - CAESAREAN SECTION [None]
  - DRUG EXPOSURE DURING PREGNANCY [None]
